FAERS Safety Report 7909687-X (Version None)
Quarter: 2011Q4

REPORT INFORMATION
  Report Type: 
  Country: None (occurrence: None)
  Receive Date: 20111111
  Receipt Date: 20111104
  Transmission Date: 20120403
  Serious: Yes (Other)
  Sender: FDA-Public Use
  Company Number: JP-GLAXOSMITHKLINE-B0757120A

PATIENT
  Sex: Female

DRUGS (9)
  1. ALLOPURINOL [Concomitant]
     Dosage: 100MG PER DAY
     Route: 048
  2. DIOVAN [Concomitant]
     Dosage: 80MG PER DAY
     Route: 048
  3. CEFAZOLIN SODIUM [Concomitant]
     Dosage: 3IUAX PER DAY
     Route: 048
  4. PREDNISOLONE [Concomitant]
     Dosage: 1MG PER DAY
     Route: 048
  5. AMLODIPINE BESYLATE [Concomitant]
     Dosage: 5MG PER DAY
     Route: 048
  6. PROMACTA [Suspect]
     Indication: PRODUCT USED FOR UNKNOWN INDICATION
     Dosage: 25MG PER DAY
     Route: 048
     Dates: start: 20110328
  7. LANSOPRAZOLE [Concomitant]
     Dosage: 15MG PER DAY
     Route: 048
  8. PREDNISOLONE [Concomitant]
     Dosage: 5MG PER DAY
     Route: 048
  9. BEZATOL SR [Concomitant]
     Dosage: 400MG PER DAY
     Route: 048

REACTIONS (2)
  - DEEP VEIN THROMBOSIS [None]
  - OEDEMA PERIPHERAL [None]
